FAERS Safety Report 4335390-1 (Version None)
Quarter: 2004Q2

REPORT INFORMATION
  Report Type: 
  Country: None (occurrence: None)
  Receive Date: 20040408
  Receipt Date: 20040408
  Transmission Date: 20050107
  Serious: No
  Sender: FDA-Public Use
  Company Number: None

PATIENT
  Age: 83 Year
  Sex: Female
  Weight: 60.782 kg

DRUGS (4)
  1. AFEDITAB CR 60 MG     WATSON PHARM [Suspect]
     Indication: HYPERTENSION
     Dosage: 60 MG DAILY PO
     Route: 048
     Dates: start: 20040122, end: 20040330
  2. VIOXX [Concomitant]
  3. SPIROAOLACTONE [Concomitant]
  4. ATIVAN [Concomitant]

REACTIONS (8)
  - CHOKING [None]
  - CONFUSIONAL STATE [None]
  - DECREASED APPETITE [None]
  - DRY MOUTH [None]
  - DYSPHONIA [None]
  - JOINT SWELLING [None]
  - LETHARGY [None]
  - PHARMACEUTICAL PRODUCT COMPLAINT [None]
